FAERS Safety Report 10983638 (Version 2)
Quarter: 2015Q2

REPORT INFORMATION
  Report Type: Report from Study
  Country: RO (occurrence: RO)
  Receive Date: 20150403
  Receipt Date: 20150403
  Transmission Date: 20150821
  Serious: Yes (Death)
  Sender: FDA-Public Use
  Company Number: RO-ABBVIE-15P-135-1368525-00

PATIENT
  Age: 74 Year
  Sex: Female

DRUGS (1)
  1. DUODOPA [Suspect]
     Active Substance: CARBIDOPA\LEVODOPA
     Indication: PARKINSON^S DISEASE
     Dosage: 24/24 CR: 5.5 ML/H, ED: 5.5 ML
     Route: 050
     Dates: start: 201002, end: 20150309

REACTIONS (5)
  - Urosepsis [Fatal]
  - Haemorrhagic stroke [Fatal]
  - Paroxysmal arrhythmia [Fatal]
  - Death [Fatal]
  - Multi-organ failure [Fatal]

NARRATIVE: CASE EVENT DATE: 20150309
